FAERS Safety Report 20629639 (Version 4)
Quarter: 2022Q4

REPORT INFORMATION
  Report Type: Report from Study
  Country: BR (occurrence: BR)
  Receive Date: 20220323
  Receipt Date: 20221126
  Transmission Date: 20230113
  Serious: Yes (Other)
  Sender: FDA-Public Use
  Company Number: BR-TAKEDA-BR202021190

PATIENT
  Sex: Male
  Weight: 70 kg

DRUGS (2)
  1. IDURSULFASE [Suspect]
     Active Substance: IDURSULFASE
     Indication: Mucopolysaccharidosis II
     Dosage: 6 DOSAGE FORM, 1/WEEK
     Route: 042
     Dates: start: 201008
  2. IDURSULFASE [Suspect]
     Active Substance: IDURSULFASE
     Dosage: 6 DOSAGE FORM
     Route: 042

REACTIONS (16)
  - Bone disorder [Unknown]
  - Condition aggravated [Unknown]
  - Spinal pain [Unknown]
  - Pain in extremity [Unknown]
  - Pyrexia [Unknown]
  - Pain in jaw [Unknown]
  - Impaired work ability [Unknown]
  - Arthralgia [Unknown]
  - Dermal cyst [Recovering/Resolving]
  - Cough [Unknown]
  - Malaise [Unknown]
  - Oropharyngeal pain [Unknown]
  - Product availability issue [Unknown]
  - Product dose omission issue [Unknown]
  - Off label use [Unknown]
  - Inappropriate schedule of product administration [Unknown]

NARRATIVE: CASE EVENT DATE: 20190101
